FAERS Safety Report 6024193-8 (Version None)
Quarter: 2008Q4

REPORT INFORMATION
  Report Type: 
  Country: None (occurrence: None)
  Receive Date: 20081224
  Receipt Date: 20081212
  Transmission Date: 20090506
  Serious: Yes (Other)
  Sender: FDA-Public Use
  Company Number: 2008SP025357

PATIENT
  Sex: Male

DRUGS (2)
  1. INTRON A [Suspect]
     Indication: HEPATITIS C
     Dates: start: 19990101
  2. REBETOL [Suspect]
     Indication: HEPATITIS C
     Route: 048
     Dates: start: 19990101

REACTIONS (7)
  - ALOPECIA [None]
  - BONE PAIN [None]
  - GOUT [None]
  - HERNIA [None]
  - INFLUENZA LIKE ILLNESS [None]
  - MUSCULOSKELETAL DISORDER [None]
  - UMBILICAL HERNIA [None]
